FAERS Safety Report 15371536 (Version 2)
Quarter: 2018Q3

REPORT INFORMATION
  Report Type: Spontaneous
  Country: CN (occurrence: CN)
  Receive Date: 20180911
  Receipt Date: 20180927
  Transmission Date: 20181010
  Serious: Yes (Hospitalization, Other)
  Sender: FDA-Public Use
  Company Number: CN-SA-2018SA245951

PATIENT
  Age: 62 Year
  Sex: Male

DRUGS (15)
  1. MOXIFLOXACIN HYDROCHLORIDE. [Suspect]
     Active Substance: MOXIFLOXACIN HYDROCHLORIDE
     Indication: DISSEMINATED TUBERCULOSIS
  2. ISONIAZID. [Suspect]
     Active Substance: ISONIAZID
     Indication: PULMONARY TUBERCULOSIS
     Dosage: UNK
     Dates: start: 2016
  3. RIFAMPICIN [Suspect]
     Active Substance: RIFAMPIN
     Indication: JOINT TUBERCULOSIS
     Dosage: CAPSULE
     Dates: start: 2016
  4. ETHAMBUTOL [Suspect]
     Active Substance: ETHAMBUTOL HYDROCHLORIDE
     Indication: DISSEMINATED TUBERCULOSIS
     Dosage: UNK
     Dates: start: 2016
  5. PYRAZINAMIDE. [Suspect]
     Active Substance: PYRAZINAMIDE
     Indication: DISSEMINATED TUBERCULOSIS
     Dosage: ORAL POWDER
     Route: 048
  6. PASINIAZID [Suspect]
     Active Substance: PASINIAZID
     Indication: DISSEMINATED TUBERCULOSIS
  7. PROTHIONAMIDE [Suspect]
     Active Substance: PROTIONAMIDE
     Indication: DISSEMINATED TUBERCULOSIS
  8. ISONIAZID. [Suspect]
     Active Substance: ISONIAZID
     Indication: JOINT TUBERCULOSIS
  9. ETHAMBUTOL [Suspect]
     Active Substance: ETHAMBUTOL HYDROCHLORIDE
     Indication: JOINT TUBERCULOSIS
  10. PYRAZINAMIDE. [Suspect]
     Active Substance: PYRAZINAMIDE
     Indication: JOINT TUBERCULOSIS
  11. RIFAPENTINE [Suspect]
     Active Substance: RIFAPENTINE
     Indication: DISSEMINATED TUBERCULOSIS
     Dosage: UNK
     Dates: start: 2016
  12. LEVOFLOXACIN. [Suspect]
     Active Substance: LEVOFLOXACIN
     Indication: DISSEMINATED TUBERCULOSIS
     Dosage: UNK
     Dates: start: 2016
  13. CAPREOMYCIN [Suspect]
     Active Substance: CAPREOMYCIN
     Indication: TUBERCULOSIS
  14. RIFAMPICIN [Suspect]
     Active Substance: RIFAMPIN
     Indication: DISSEMINATED TUBERCULOSIS
  15. RIFAPENTINE [Suspect]
     Active Substance: RIFAPENTINE
     Indication: JOINT TUBERCULOSIS

REACTIONS (22)
  - Abdominal discomfort [Unknown]
  - Peritonitis [Unknown]
  - Abdominal pain [Unknown]
  - Pulmonary tuberculosis [Unknown]
  - Dyspnoea [Recovered/Resolved]
  - Abdominal distension [Unknown]
  - Cough [Unknown]
  - Weight decreased [Unknown]
  - Pyrexia [Recovered/Resolved]
  - Treatment noncompliance [Unknown]
  - Pain [Unknown]
  - Wheezing [Unknown]
  - Chest pain [Recovered/Resolved]
  - Disseminated tuberculosis [Unknown]
  - Epididymal disorder [Unknown]
  - Chest discomfort [Unknown]
  - Purulent discharge [Recovered/Resolved]
  - Fatigue [Unknown]
  - Drug resistance [Recovered/Resolved]
  - Renal tuberculosis [Unknown]
  - Fistula [Recovered/Resolved]
  - Herpes dermatitis [Recovering/Resolving]
